FAERS Safety Report 12604848 (Version 1)
Quarter: 2016Q3

REPORT INFORMATION
  Report Type: Spontaneous
  Country: BR (occurrence: BR)
  Receive Date: 20160728
  Receipt Date: 20160728
  Transmission Date: 20161109
  Serious: Yes (Other)
  Sender: FDA-Public Use
  Company Number: BR-ASTRAZENECA-2016SE80246

PATIENT
  Age: 28214 Day
  Sex: Female

DRUGS (36)
  1. MEROPENEM. [Suspect]
     Active Substance: MEROPENEM
     Route: 042
     Dates: start: 20160530, end: 20160614
  2. VENLAFAXINE [Concomitant]
     Active Substance: VENLAFAXINE HYDROCHLORIDE
     Dosage: DAILY
  3. VANCOMYCIN [Concomitant]
     Active Substance: VANCOMYCIN
     Dates: start: 20160530, end: 20160620
  4. HYDROCHLOROTHIAZIDE. [Concomitant]
     Active Substance: HYDROCHLOROTHIAZIDE
     Dosage: DAILY
     Dates: start: 2016
  5. OMEPRAZOLE. [Suspect]
     Active Substance: OMEPRAZOLE
     Route: 048
  6. TEICOPLANIN [Concomitant]
     Active Substance: TEICOPLANIN
  7. CIPROFLOXACIN. [Concomitant]
     Active Substance: CIPROFLOXACIN
     Dates: start: 20160615
  8. TEICOPLANIN [Concomitant]
     Active Substance: TEICOPLANIN
     Dates: start: 201605, end: 20160530
  9. CEFTAZIDIME. [Concomitant]
     Active Substance: CEFTAZIDIME
     Dates: start: 201605
  10. ACETYLCYSTEINE POWDER [Concomitant]
     Dosage: EVERY EIGHT HOURS
  11. LORATADINE. [Concomitant]
     Active Substance: LORATADINE
     Dosage: DAILY
     Dates: start: 2016
  12. OMEPRAZOLE. [Suspect]
     Active Substance: OMEPRAZOLE
     Route: 048
  13. LINEZOLID. [Suspect]
     Active Substance: LINEZOLID
     Route: 048
     Dates: end: 20160629
  14. BISACODIL [Concomitant]
     Dosage: DAILY
  15. PIPERACILIN [Concomitant]
     Dates: end: 20160624
  16. TIGECYCLIN [Concomitant]
     Dosage: TWO TIMES A DAY
     Dates: start: 201606, end: 20160629
  17. POTASSIUM CHLORIDE. [Concomitant]
     Active Substance: POTASSIUM CHLORIDE
     Dosage: EVERY EIGHT HOURS
     Route: 048
     Dates: start: 2016
  18. DIPHENHYDRAMINE. [Concomitant]
     Active Substance: DIPHENHYDRAMINE
     Dosage: EVERY SIX HOURS
     Route: 042
     Dates: start: 2016
  19. FUROSEMIDE. [Concomitant]
     Active Substance: FUROSEMIDE
     Dosage: EVERY 12 HOURS
     Route: 042
     Dates: start: 2016
  20. OXYCODONE [Concomitant]
     Active Substance: OXYCODONE
     Dosage: EVERY 12 HOURS
     Dates: start: 2016
  21. CEFUROXIME. [Concomitant]
     Active Substance: CEFUROXIME
     Dosage: EVERY 12 HOURS
     Dates: start: 20160502, end: 20160505
  22. AMIKACIN [Concomitant]
     Active Substance: AMIKACIN
     Dates: start: 201605, end: 20160530
  23. AMIKACIN [Concomitant]
     Active Substance: AMIKACIN
     Dosage: TWO TIMES A DAY
     Dates: start: 20160624, end: 20160625
  24. TAZOBACTAM [Concomitant]
     Active Substance: TAZOBACTAM
  25. HYDROCORTISONE. [Concomitant]
     Active Substance: HYDROCORTISONE
     Dosage: EVERY EIGHT HOURS
     Route: 042
     Dates: start: 2016, end: 20160616
  26. LOSARTAN. [Concomitant]
     Active Substance: LOSARTAN
     Dosage: AS REQUIRED
     Dates: start: 2016
  27. ENOXAPARIN [Concomitant]
     Active Substance: ENOXAPARIN
     Dosage: DAILY
     Route: 058
     Dates: start: 2016
  28. LINEZOLID. [Suspect]
     Active Substance: LINEZOLID
     Route: 048
     Dates: start: 20160620
  29. RIFAMPICIN [Concomitant]
     Active Substance: RIFAMPIN
     Dates: start: 20160530, end: 20160620
  30. HYDROCORTISONE. [Concomitant]
     Active Substance: HYDROCORTISONE
     Dosage: 100.0MG UNKNOWN
     Dates: start: 2016
  31. TRAMAL [Concomitant]
     Active Substance: TRAMADOL
     Dosage: EVERY SIX HOURS
     Dates: start: 2016
  32. PROPAFENONE. [Concomitant]
     Active Substance: PROPAFENONE
     Dosage: EVERY 12 HOURS
     Dates: start: 2016
  33. BROMOPRIDE [Concomitant]
     Active Substance: BROMOPRIDE
     Dosage: THREE TIMES A DAY
     Dates: start: 2016
  34. ENALAPRIL [Concomitant]
     Active Substance: ENALAPRIL
     Dosage: EVERY 12 HOURS
     Dates: start: 2016
  35. PARACETAMOL [Concomitant]
     Active Substance: ACETAMINOPHEN
     Dosage: 40 DROPS, EVERY SIX HOURS
     Dates: start: 2016
  36. MORPHINE [Concomitant]
     Active Substance: MORPHINE
     Dosage: AS REQUIRED
     Route: 042
     Dates: start: 2016

REACTIONS (21)
  - Respiratory distress [Recovered/Resolved]
  - Rash [Recovered/Resolved]
  - Pancytopenia [Recovering/Resolving]
  - Swollen tongue [Unknown]
  - Hypersensitivity [Unknown]
  - Bronchospasm [Recovered/Resolved]
  - Chest pain [Recovered/Resolved]
  - Suffocation feeling [Recovered/Resolved]
  - Wheezing [Recovered/Resolved]
  - Pyrexia [Recovered/Resolved]
  - Peripheral swelling [Recovered/Resolved]
  - Throat irritation [Recovered/Resolved]
  - Erythema [Recovered/Resolved]
  - Headache [Recovered/Resolved]
  - Migraine [Recovered/Resolved]
  - Hypertensive crisis [Recovered/Resolved]
  - Malaise [Recovered/Resolved]
  - Hyperaemia [Recovered/Resolved]
  - Dyspnoea [Unknown]
  - Pruritus generalised [Recovered/Resolved]
  - Skin burning sensation [Recovered/Resolved]

NARRATIVE: CASE EVENT DATE: 20160505
